FAERS Safety Report 6742636-9 (Version None)
Quarter: 2010Q2

REPORT INFORMATION
  Report Type: 
  Country: None (occurrence: None)
  Receive Date: 20100526
  Receipt Date: 20100517
  Transmission Date: 20101027
  Serious: Yes (Hospitalization, Other)
  Sender: FDA-Public Use
  Company Number: US-MERCK-1001USA01376

PATIENT
  Age: 70 Year
  Sex: Male

DRUGS (3)
  1. FOSAMAX [Suspect]
     Indication: OSTEOPENIA
     Route: 048
     Dates: start: 19980101, end: 20071201
  2. FOSAMAX [Suspect]
     Route: 048
     Dates: start: 20020501
  3. FOSAMAX [Suspect]
     Route: 048
     Dates: start: 20020501

REACTIONS (71)
  - ACUTE MYELOID LEUKAEMIA [None]
  - AORTIC ARTERIOSCLEROSIS [None]
  - APHTHOUS STOMATITIS [None]
  - ARTHRALGIA [None]
  - ARTHROPATHY [None]
  - BLOOD CHOLESTEROL INCREASED [None]
  - BONE DENSITY DECREASED [None]
  - BRONCHITIS [None]
  - BURSA DISORDER [None]
  - DEAFNESS [None]
  - DENTAL NECROSIS [None]
  - DERMATITIS PSORIASIFORM [None]
  - DERMATOSIS [None]
  - DIVERTICULITIS [None]
  - DIVERTICULUM INTESTINAL [None]
  - DRUG ADMINISTRATION ERROR [None]
  - DYSGEUSIA [None]
  - DYSLIPIDAEMIA [None]
  - ERECTILE DYSFUNCTION [None]
  - EXOSTOSIS [None]
  - GASTROINTESTINAL ANGIODYSPLASIA [None]
  - GASTROOESOPHAGEAL REFLUX DISEASE [None]
  - GINGIVAL DISORDER [None]
  - GINGIVAL HYPERPLASIA [None]
  - GINGIVAL PAIN [None]
  - GLUCOSE TOLERANCE IMPAIRED [None]
  - HAEMATURIA [None]
  - HAEMORRHAGE [None]
  - HAEMORRHOIDS [None]
  - HEPATIC CYST [None]
  - HYPERTENSION [None]
  - IMPAIRED HEALING [None]
  - INTERVERTEBRAL DISC DEGENERATION [None]
  - INTERVERTEBRAL DISC PROTRUSION [None]
  - LOBAR PNEUMONIA [None]
  - LOOSE TOOTH [None]
  - LUMBAR SPINAL STENOSIS [None]
  - LUNG NEOPLASM [None]
  - MITRAL VALVE INCOMPETENCE [None]
  - MUSCLE STRAIN [None]
  - MUSCULOSKELETAL PAIN [None]
  - MYALGIA [None]
  - MYOSITIS [None]
  - NEPHROLITHIASIS [None]
  - ORAL CAVITY FISTULA [None]
  - OSTEOARTHRITIS [None]
  - OSTEOMYELITIS [None]
  - OSTEONECROSIS OF JAW [None]
  - PANCYTOPENIA [None]
  - PERIVASCULAR DERMATITIS [None]
  - PITYRIASIS LICHENOIDES ET VARIOLIFORMIS ACUTA [None]
  - PSORIASIS [None]
  - PYREXIA [None]
  - RADICULITIS LUMBOSACRAL [None]
  - RADICULOPATHY [None]
  - RENAL CYST [None]
  - RENAL FAILURE CHRONIC [None]
  - RESPIRATORY TRACT INFECTION [None]
  - RHINITIS ALLERGIC [None]
  - SINUSITIS [None]
  - SLEEP APNOEA SYNDROME [None]
  - SPINAL OSTEOARTHRITIS [None]
  - SQUAMOUS CELL CARCINOMA OF SKIN [None]
  - TENDONITIS [None]
  - TINNITUS [None]
  - TOOTH ABSCESS [None]
  - TOOTH FRACTURE [None]
  - TOOTH INFECTION [None]
  - TYPE 2 DIABETES MELLITUS [None]
  - VASCULITIS [None]
  - VIRAL INFECTION [None]
